FAERS Safety Report 8274379-7 (Version None)
Quarter: 2012Q1

REPORT INFORMATION
  Report Type: 
  Country: None (occurrence: None)
  Receive Date: 20120309
  Receipt Date: 20110315
  Transmission Date: 20120608
  Serious: Yes (Hospitalization)
  Sender: FDA-Public Use
  Company Number: PHHY2011US21851

PATIENT
  Age: 65 Year
  Sex: Male

DRUGS (3)
  1. AZITHROMAX (AZITHROMYCIN) [Concomitant]
  2. TEKTURNA HCT [Suspect]
     Dosage: 300/12.5 MG, QD
     Dates: start: 20080101
  3. PREDNISOLONE [Concomitant]

REACTIONS (1)
  - ANGIOEDEMA [None]
